FAERS Safety Report 4539711-6 (Version None)
Quarter: 2004Q4

REPORT INFORMATION
  Report Type: 
  Country: None (occurrence: None)
  Receive Date: 20041228
  Receipt Date: 20041220
  Transmission Date: 20050328
  Serious: Yes (Death)
  Sender: FDA-Public Use
  Company Number: JP-JNJFOC-20040908769

PATIENT
  Sex: Female

DRUGS (9)
  1. DUROTEP [Suspect]
     Indication: CANCER PAIN
     Route: 062
     Dates: start: 20031127, end: 20031208
  2. FUROSEMIDE [Concomitant]
     Indication: OEDEMA
     Dates: start: 20031114, end: 20031208
  3. MAGNESIUM OXIDE [Concomitant]
     Indication: CONSTIPATION
     Route: 049
     Dates: start: 20031114, end: 20031129
  4. RANITIDINE HYDROCHLORIDE [Concomitant]
     Indication: GASTRIC MUCOSAL LESION
     Dates: start: 20031120, end: 20031208
  5. ALBUMIN (HUMAN) [Concomitant]
     Dates: start: 20031121, end: 20031128
  6. ALBUMIN (HUMAN) [Concomitant]
     Indication: HYPOALBUMINAEMIA
     Dates: start: 20031121, end: 20031128
  7. SCOPOLAMINE HYDROBROMIDE [Concomitant]
     Dates: start: 20031123, end: 20031202
  8. BETAMETHASONE SODIUM PHOSPHATE [Concomitant]
     Indication: MALAISE
     Dates: start: 20031126, end: 20031208
  9. METOCLOPRAMIDE [Concomitant]
     Dates: start: 20031127, end: 20031201

REACTIONS (1)
  - GASTRIC CANCER [None]
